FAERS Safety Report 10730154 (Version 2)
Quarter: 2015Q1

REPORT INFORMATION
  Report Type: Spontaneous
  Country: US (occurrence: US)
  Receive Date: 20150122
  Receipt Date: 20150310
  Transmission Date: 20150721
  Serious: Yes (Other)
  Sender: FDA-Public Use
  Company Number: US-ASTELLAS-2015US001472

PATIENT
  Age: 24 Year
  Sex: Male

DRUGS (1)
  1. AMBISOME [Suspect]
     Active Substance: AMPHOTERICIN B
     Indication: PULMONARY MYCOSIS
     Dosage: 300 MG, UNKNOWN FREQ. (TOOK FOR THREE MONTHS)
     Route: 042

REACTIONS (1)
  - Deafness [Recovered/Resolved]
